FAERS Safety Report 25657427 (Version 1)
Quarter: 2025Q3

REPORT INFORMATION
  Report Type: Report from Study
  Country: US (occurrence: US)
  Receive Date: 20250808
  Receipt Date: 20250808
  Transmission Date: 20251021
  Serious: Yes (Hospitalization, Other)
  Sender: ABBVIE
  Company Number: US-ABBVIE-6405240

PATIENT
  Age: 25 Year
  Sex: Female

DRUGS (1)
  1. RISANKIZUMAB [Suspect]
     Active Substance: RISANKIZUMAB
     Indication: Crohn^s disease
     Route: 058

REACTIONS (3)
  - Ileostomy [Recovered/Resolved]
  - Infection [Unknown]
  - Alopecia [Unknown]

NARRATIVE: CASE EVENT DATE: 20250201
